FAERS Safety Report 6546016-0 (Version None)
Quarter: 2010Q1

REPORT INFORMATION
  Report Type: 
  Country: None (occurrence: None)
  Receive Date: 20100121
  Receipt Date: 20100121
  Transmission Date: 20100710
  Serious: Yes (Hospitalization)
  Sender: FDA-Public Use
  Company Number: None

PATIENT
  Age: 49 Year
  Sex: Female
  Weight: 87.0906 kg

DRUGS (1)
  1. COGENTIN [Suspect]
     Indication: TARDIVE DYSKINESIA
     Dosage: 1MG TABLET 3 TIMES DAILY PO
     Route: 048
     Dates: start: 20091118, end: 20091123

REACTIONS (1)
  - HALLUCINATION [None]
